FAERS Safety Report 10074707 (Version 1)
Quarter: 2014Q2

REPORT INFORMATION
  Report Type: Spontaneous
  Country: US (occurrence: US)
  Receive Date: 20140414
  Receipt Date: 20140414
  Transmission Date: 20141212
  Serious: Yes (Other)
  Sender: FDA-Public Use
  Company Number: US-BEH-2014041646

PATIENT
  Sex: Male

DRUGS (4)
  1. HIZENTRA [Suspect]
     Indication: IMMUNODEFICIENCY COMMON VARIABLE
     Dosage: FOR PAST 3 YEARS
     Route: 058
  2. ZYRTEC [Concomitant]
  3. INTUNIV [Concomitant]
  4. ZANTAC [Concomitant]

REACTIONS (9)
  - Conjunctivitis [Recovering/Resolving]
  - Bronchitis [Recovering/Resolving]
  - Infectious mononucleosis [Recovering/Resolving]
  - Sinusitis [Recovering/Resolving]
  - Influenza [Recovering/Resolving]
  - Fatigue [Not Recovered/Not Resolved]
  - Pain [Not Recovered/Not Resolved]
  - Back pain [Not Recovered/Not Resolved]
  - Pain in extremity [Not Recovered/Not Resolved]
